FAERS Safety Report 8338164-X (Version None)
Quarter: 2012Q2

REPORT INFORMATION
  Report Type: 
  Country: None (occurrence: None)
  Receive Date: 20120504
  Receipt Date: 20120430
  Transmission Date: 20120825
  Serious: No
  Sender: FDA-Public Use
  Company Number: US-PFIZER INC-2012106288

PATIENT
  Sex: Female
  Weight: 70 kg

DRUGS (1)
  1. DEPO-PROVERA [Suspect]
     Indication: CONTRACEPTION
     Dosage: UNK
     Route: 030
     Dates: start: 20120206

REACTIONS (5)
  - CRYING [None]
  - DEPRESSION [None]
  - MOOD SWINGS [None]
  - CONFUSIONAL STATE [None]
  - ABNORMAL BEHAVIOUR [None]
